FAERS Safety Report 5990019-1 (Version None)
Quarter: 2008Q4

REPORT INFORMATION
  Report Type: 
  Country: None (occurrence: None)
  Receive Date: 20081209
  Receipt Date: 20081209
  Transmission Date: 20090506
  Serious: Yes (Disabling)
  Sender: FDA-Public Use
  Company Number: None

PATIENT
  Age: 46 Year
  Sex: Female
  Weight: 62.5964 kg

DRUGS (6)
  1. LEVAQUIN [Suspect]
     Indication: BACTERIAL INFECTION
     Dosage: 1 TABLET DAILY PO
     Route: 048
     Dates: start: 20080320, end: 20080325
  2. LEVAQUIN [Suspect]
     Indication: LUNG INFECTION
     Dosage: 1 TABLET DAILY PO
     Route: 048
     Dates: start: 20080320, end: 20080325
  3. LEVAQUIN [Suspect]
     Indication: PNEUMONIA
     Dosage: 1 TABLET DAILY PO
     Route: 048
     Dates: start: 20080320, end: 20080325
  4. LEVAQUIN [Suspect]
     Indication: BACTERIAL INFECTION
     Dosage: 1 TABLET DAILY PO
     Route: 048
     Dates: start: 20081203, end: 20081205
  5. LEVAQUIN [Suspect]
     Indication: LUNG INFECTION
     Dosage: 1 TABLET DAILY PO
     Route: 048
     Dates: start: 20081203, end: 20081205
  6. LEVAQUIN [Suspect]
     Indication: PNEUMONIA
     Dosage: 1 TABLET DAILY PO
     Route: 048
     Dates: start: 20081203, end: 20081205

REACTIONS (9)
  - ARTHRALGIA [None]
  - GAIT DISTURBANCE [None]
  - INFLUENZA LIKE ILLNESS [None]
  - MUSCULOSKELETAL PAIN [None]
  - MUSCULOSKELETAL STIFFNESS [None]
  - MYALGIA [None]
  - PAIN IN EXTREMITY [None]
  - TENDON DISORDER [None]
  - TENDONITIS [None]
